FAERS Safety Report 8310348-6 (Version None)
Quarter: 2012Q2

REPORT INFORMATION
  Report Type: 
  Country: None (occurrence: None)
  Receive Date: 20120425
  Receipt Date: 20120419
  Transmission Date: 20120825
  Serious: Yes (Life-Threatening, Hospitalization, Other)
  Sender: FDA-Public Use
  Company Number: PHHY2011FR38494

PATIENT
  Sex: Male
  Weight: 59.5 kg

DRUGS (9)
  1. MICARDIS [Concomitant]
     Indication: HYPERTENSION
     Dosage: 80 MG, DAILY
     Route: 048
     Dates: start: 20080226
  2. NOVOMIX [Concomitant]
     Indication: TYPE 2 DIABETES MELLITUS
  3. ALISKIREN [Suspect]
     Indication: RENAL DISORDER
     Dosage: 300 MG, DAILY
     Route: 048
     Dates: start: 20100617, end: 20111006
  4. INSULIN [Concomitant]
     Indication: DIABETES MELLITUS
  5. FELODIPINE [Concomitant]
     Indication: HYPERTENSION
     Dosage: 1 DF, DAILY
     Dates: start: 20080623
  6. DOXAZOSIN MESYLATE [Concomitant]
     Indication: PROSTATIC DISORDER
     Dosage: 8 MG, DAILY
     Route: 048
     Dates: start: 20080226
  7. ASPIRIN [Concomitant]
     Indication: CARDIAC FAILURE
     Dosage: 75 MG, UNK
     Route: 048
     Dates: start: 20080226
  8. LASIX [Concomitant]
     Indication: CARDIAC FAILURE
     Dosage: 125 MG, DAILY
     Dates: start: 20080325
  9. ATORVASTATIN [Concomitant]
     Indication: HYPERCHOLESTEROLAEMIA
     Dosage: 10 MG, DAILY
     Route: 048
     Dates: start: 20080226

REACTIONS (5)
  - PROTEINURIA [None]
  - CONCOMITANT DISEASE PROGRESSION [None]
  - RENAL FAILURE [None]
  - BLOOD CREATININE INCREASED [None]
  - DRUG INEFFECTIVE [None]
